FAERS Safety Report 5962578-6 (Version None)
Quarter: 2008Q4

REPORT INFORMATION
  Report Type: 
  Country: None (occurrence: None)
  Receive Date: 20081121
  Receipt Date: 20081111
  Transmission Date: 20090506
  Serious: Yes (Other)
  Sender: FDA-Public Use
  Company Number: CA-PFIZER INC-2008096116

PATIENT
  Sex: Female

DRUGS (2)
  1. ZELDOX (CAPSULES) [Suspect]
     Indication: SCHIZOPHRENIA, PARANOID TYPE
     Route: 048
  2. CLOZARIL [Suspect]
     Indication: SCHIZOPHRENIA, PARANOID TYPE
     Route: 048

REACTIONS (3)
  - AGITATION [None]
  - ELECTROCARDIOGRAM QT PROLONGED [None]
  - PARANOIA [None]
